FAERS Safety Report 16309769 (Version 2)
Quarter: 2021Q4

REPORT INFORMATION
  Report Type: Report from Study
  Country: CA (occurrence: CA)
  Receive Date: 20190514
  Receipt Date: 20211110
  Transmission Date: 20220304
  Serious: Yes (Other)
  Sender: FDA-Public Use
  Company Number: PHHY2018CA100913

PATIENT
  Age: 69 Year
  Sex: Female

DRUGS (10)
  1. IRBESARTAN [Suspect]
     Active Substance: IRBESARTAN
     Indication: Hypertension
     Dosage: 1 DF, QD
     Route: 048
     Dates: start: 2017
  2. PRAMIPEXOLE [Suspect]
     Active Substance: PRAMIPEXOLE
     Indication: Pain in extremity
     Dosage: 1 DF, BID
     Route: 048
     Dates: start: 2017
  3. PREGABALIN [Suspect]
     Active Substance: PREGABALIN
     Indication: Pain in extremity
     Dosage: 1 DF, BID
     Route: 048
     Dates: start: 2017
  4. ZENHALE [Concomitant]
     Active Substance: FORMOTEROL FUMARATE\MOMETASONE FUROATE
     Indication: Asthma
     Dosage: 1 DF, BID
     Route: 055
     Dates: start: 2013
  5. CICLESONIDE [Concomitant]
     Active Substance: CICLESONIDE
     Indication: Asthma
     Dosage: 1 DF, QD
     Route: 055
     Dates: start: 2013
  6. SPIRIVA [Concomitant]
     Active Substance: TIOTROPIUM BROMIDE MONOHYDRATE
     Indication: Product used for unknown indication
     Dosage: 2 DF, QD
     Route: 065
  7. VENTOLIN [Concomitant]
     Active Substance: ALBUTEROL SULFATE
     Indication: Asthma
     Dosage: 2 DF, PRN
     Route: 055
     Dates: start: 2013
  8. PANTOPRAZOLE SODIUM [Concomitant]
     Active Substance: PANTOPRAZOLE SODIUM
     Indication: Gastrooesophageal reflux disease
     Dosage: 1 DF, QD
     Route: 048
     Dates: start: 2017
  9. SYNTHROID [Concomitant]
     Active Substance: LEVOTHYROXINE SODIUM
     Indication: Hypothyroidism
     Dosage: 1 DF, QD
     Route: 048
     Dates: start: 2017
  10. METFORMIN HYDROCHLORIDE [Concomitant]
     Active Substance: METFORMIN HYDROCHLORIDE
     Indication: Type 2 diabetes mellitus
     Dosage: 1 DF, BID
     Route: 048
     Dates: start: 2017

REACTIONS (13)
  - Atrial fibrillation [Unknown]
  - Asthma [Not Recovered/Not Resolved]
  - Productive cough [Unknown]
  - Secretion discharge [Unknown]
  - Dyspnoea [Unknown]
  - Middle insomnia [Unknown]
  - Bronchitis [Unknown]
  - Bronchospasm [Unknown]
  - Cough [Unknown]
  - Sense of oppression [Unknown]
  - Dyspnoea exertional [Unknown]
  - Wheezing [Unknown]
  - Breath sounds abnormal [Unknown]
